FAERS Safety Report 13859776 (Version 1)
Quarter: 2017Q3

REPORT INFORMATION
  Report Type: Spontaneous
  Country: US (occurrence: US)
  Receive Date: 20170811
  Receipt Date: 20170811
  Transmission Date: 20171127
  Serious: No
  Sender: FDA-Public Use
  Company Number: US-PFIZER INC-2017347004

PATIENT
  Age: 67 Year
  Sex: Male
  Weight: 58.97 kg

DRUGS (4)
  1. LISINOPRIL. [Concomitant]
     Active Substance: LISINOPRIL
     Dosage: 20 MG, 1X/DAY
  2. NICOTROL [Suspect]
     Active Substance: NICOTINE
     Dosage: UNK, AS NEEDED (2 SPRAYS EVERY 3-4 HOURS)
  3. OXYGEN. [Concomitant]
     Active Substance: OXYGEN
     Dosage: UNK
  4. NICOTROL [Suspect]
     Active Substance: NICOTINE
     Indication: TOBACCO USER
     Dosage: UNK, (1 DOSE IN EACH NOSTRIL)
     Route: 045
     Dates: start: 20170808, end: 20170808

REACTIONS (1)
  - Application site pain [Recovering/Resolving]

NARRATIVE: CASE EVENT DATE: 20170808
